FAERS Safety Report 9526200 (Version 1)
Quarter: 2013Q3

REPORT INFORMATION
  Report Type: Spontaneous
  Country: FR (occurrence: FR)
  Receive Date: 20130916
  Receipt Date: 20130916
  Transmission Date: 20140515
  Serious: Yes (Hospitalization)
  Sender: FDA-Public Use
  Company Number: FR-PFIZER INC-2013261903

PATIENT
  Age: 56 Year
  Sex: Male

DRUGS (11)
  1. TAHOR [Suspect]
     Dosage: 80 MG, 1X/DAY
     Route: 048
     Dates: start: 20130813
  2. BRILIQUE [Suspect]
     Dosage: 90 MG, 2X/DAY
     Route: 048
     Dates: start: 20130813, end: 20130826
  3. KARDEGIC [Suspect]
     Dosage: 75 MG, 1X/DAY
     Route: 048
     Dates: start: 20130813
  4. SECTRAL [Suspect]
     Dosage: 100 MG, 2X/DAY
     Route: 048
     Dates: start: 20130813
  5. INEXIUM [Concomitant]
     Dosage: 20 MG, DAILY
  6. COTRIATEC [Concomitant]
     Dosage: 5/12.5 (AS REPORTED)
  7. STAGID [Concomitant]
     Dosage: 700 MG, 2X/DAY
  8. SEROPLEX [Concomitant]
     Dosage: UNK
  9. XANAX [Concomitant]
     Dosage: UNK
  10. THERALENE [Concomitant]
     Dosage: UNK
  11. NATISPRAY [Concomitant]
     Dosage: UNK

REACTIONS (1)
  - Dyspnoea [Not Recovered/Not Resolved]
